FAERS Safety Report 6242277-6 (Version None)
Quarter: 2009Q2

REPORT INFORMATION
  Report Type: 
  Country: None (occurrence: None)
  Receive Date: 20090622
  Receipt Date: 20090622
  Transmission Date: 20091009
  Serious: No
  Sender: FDA-Public Use
  Company Number: None

PATIENT
  Age: 58 Year
  Sex: Female
  Weight: 70.3075 kg

DRUGS (1)
  1. ZICAM COLD REMEDY GEL SWABS ADULT STRENGTH ZICAM LLC / MATRIXX [Suspect]
     Indication: NASOPHARYNGITIS
     Dosage: ONE SWAB DAILY NASAL
     Route: 045
     Dates: start: 20090211, end: 20090225

REACTIONS (4)
  - AGEUSIA [None]
  - ANOSMIA [None]
  - DRY MOUTH [None]
  - NASAL DRYNESS [None]
